FAERS Safety Report 22075422 (Version 1)
Quarter: 2023Q1

REPORT INFORMATION
  Report Type: Spontaneous
  Country: US (occurrence: None)
  Receive Date: 20230307
  Receipt Date: 20230307
  Transmission Date: 20230417
  Serious: Yes (Other)
  Sender: FDA-Public Use
  Company Number: None

PATIENT
  Age: 61 Year
  Sex: Female
  Weight: 82.55 kg

DRUGS (1)
  1. OCREVUS [Suspect]
     Active Substance: OCRELIZUMAB

REACTIONS (3)
  - Throat irritation [None]
  - Infusion related reaction [None]
  - Therapy interrupted [None]

NARRATIVE: CASE EVENT DATE: 20230307
